FAERS Safety Report 11976481 (Version 1)
Quarter: 2016Q1

REPORT INFORMATION
  Report Type: Report from Study
  Country: PE (occurrence: PE)
  Receive Date: 20160129
  Receipt Date: 20160129
  Transmission Date: 20160526
  Serious: Yes (Hospitalization, Other)
  Sender: FDA-Public Use
  Company Number: PE-BRISTOL-MYERS SQUIBB COMPANY-BMS-2016-003557

PATIENT
  Sex: Male

DRUGS (1)
  1. GLYBURIDE,METFORMIN HYDROCHLORIDE [Suspect]
     Active Substance: GLYBURIDE\METFORMIN HYDROCHLORIDE
     Indication: DIABETES MELLITUS
     Dosage: 1 DF, BID
     Route: 065
     Dates: start: 20150326, end: 20151015

REACTIONS (3)
  - Cerebrovascular accident [Unknown]
  - Gait disturbance [Not Recovered/Not Resolved]
  - Hypertension [Unknown]

NARRATIVE: CASE EVENT DATE: 2015
